FAERS Safety Report 5455670-6 (Version None)
Quarter: 2007Q3

REPORT INFORMATION
  Report Type: 
  Country: None (occurrence: None)
  Receive Date: 20070918
  Receipt Date: 20070228
  Transmission Date: 20080115
  Serious: No
  Sender: FDA-Public Use
  Company Number: US-ASTRAZENECA-2006UW22296

PATIENT
  Sex: Female
  Weight: 109.1 kg

DRUGS (6)
  1. SEROQUEL [Suspect]
     Indication: SCHIZOPHRENIA
     Route: 048
     Dates: start: 20011001
  2. SEROQUEL [Suspect]
     Indication: DEPRESSION
     Route: 048
     Dates: start: 20011001
  3. SEROQUEL [Suspect]
     Indication: MOOD SWINGS
     Route: 048
     Dates: start: 20011001
  4. RISPERDAL [Concomitant]
  5. ZYPREXA [Concomitant]
  6. PROZAC [Concomitant]

REACTIONS (2)
  - DIABETES MELLITUS [None]
  - GALLBLADDER DISORDER [None]
